FAERS Safety Report 5630871-2 (Version None)
Quarter: 2008Q1

REPORT INFORMATION
  Report Type: 
  Country: None (occurrence: None)
  Receive Date: 20080219
  Receipt Date: 20080208
  Transmission Date: 20080703
  Serious: Yes (Hospitalization)
  Sender: FDA-Public Use
  Company Number: FR-ROCHE-534160

PATIENT
  Age: 82 Year
  Sex: Female
  Weight: 48.5 kg

DRUGS (7)
  1. BONIVA [Suspect]
     Indication: OSTEOPOROSIS
     Route: 048
     Dates: start: 20070509, end: 20071017
  2. PREVISCAN [Concomitant]
     Dosage: DOSAEG REGIMEN REPORTED AS 1/2 DOSE.
     Dates: start: 20070314
  3. OMEPRAZOLE [Concomitant]
     Dosage: DRUG REPORTED AS OMEPRAZOLE 20. DOSE REPORTED AS 1 DOSE.
     Dates: start: 20050727, end: 20070920
  4. LEVOTHYROX [Concomitant]
     Indication: HYPOTHYROIDISM
     Dosage: DOSE REPORTED AS 1 DOSE.
     Dates: start: 20050520
  5. STABLON [Concomitant]
     Indication: DEPRESSION
     Dosage: DOSE REPORTED AS 3 DOSES.
     Dates: start: 20050520, end: 20070927
  6. LORAZEPAM [Concomitant]
     Indication: INSOMNIA
     Dosage: DOSE REPORTED AS 1 DOSE.
     Dates: start: 20050520, end: 20071026
  7. DEXTROPROPOXYPHENE [Concomitant]
     Dosage: DOSE REPORTED AS 3 DOSES.
     Dates: start: 20050520, end: 20070121

REACTIONS (3)
  - CARDIAC FAILURE [None]
  - GENERAL PHYSICAL HEALTH DETERIORATION [None]
  - HYPONATRAEMIA [None]
